FAERS Safety Report 14473518 (Version 1)
Quarter: 2018Q1

REPORT INFORMATION
  Report Type: Report from Study
  Country: KR (occurrence: KR)
  Receive Date: 20180201
  Receipt Date: 20180201
  Transmission Date: 20180509
  Serious: Yes (Death)
  Sender: FDA-Public Use
  Company Number: KR-EISAI MEDICAL RESEARCH-EC-2018-035615

PATIENT
  Age: 51 Year
  Sex: Female
  Weight: 60 kg

DRUGS (29)
  1. BORYUNG MUCOMYST [Concomitant]
  2. ATIVAN [Concomitant]
     Active Substance: LORAZEPAM
  3. DICAMAX [Concomitant]
  4. BETMIGA [Concomitant]
     Active Substance: MIRABEGRON
  5. DICODE [Concomitant]
  6. X-PREVEN [Concomitant]
  7. KUHNIL GABAPENTIN [Concomitant]
  8. SALBUTAMOL [Concomitant]
     Active Substance: ALBUTEROL
  9. HALAVEN [Suspect]
     Active Substance: ERIBULIN MESYLATE
     Route: 041
     Dates: start: 20170926, end: 20171108
  10. EXFORGE [Concomitant]
     Active Substance: AMLODIPINE BESYLATE\VALSARTAN
  11. LYRICA [Concomitant]
     Active Substance: PREGABALIN
  12. SAMA TANTUM [Concomitant]
  13. APETROL [Concomitant]
  14. ENCOVER [Concomitant]
  15. HALAVEN [Suspect]
     Active Substance: ERIBULIN MESYLATE
     Route: 041
     Dates: start: 20170905, end: 20170919
  16. HALAVEN [Suspect]
     Active Substance: ERIBULIN MESYLATE
     Route: 041
     Dates: start: 20171220, end: 20180103
  17. RABIET [Concomitant]
  18. CAROL-F [Concomitant]
  19. STILLEN [Concomitant]
  20. AMALFI [Concomitant]
  21. SYNTHROID [Concomitant]
     Active Substance: LEVOTHYROXINE SODIUM
  22. PYRIDOXINE [Concomitant]
     Active Substance: PYRIDOXINE
  23. ZOMEBON [Concomitant]
  24. LEGALON [Concomitant]
     Active Substance: DIETARY SUPPLEMENT\HERBALS\MILK THISTLE
  25. HALAVEN [Suspect]
     Active Substance: ERIBULIN MESYLATE
     Indication: BREAST CANCER METASTATIC
     Route: 041
     Dates: start: 20170707, end: 20170826
  26. TATHION [Concomitant]
     Active Substance: GLUTATHIONE
  27. SOLETON [Concomitant]
     Active Substance: ZALTOPROFEN
  28. CODAEWON [Concomitant]
  29. URSA [Concomitant]
     Active Substance: URSODIOL

REACTIONS (1)
  - Pneumonia [Fatal]

NARRATIVE: CASE EVENT DATE: 20180113
